FAERS Safety Report 7879749-4 (Version None)
Quarter: 2011Q4

REPORT INFORMATION
  Report Type: 
  Country: None (occurrence: None)
  Receive Date: 20111101
  Receipt Date: 20111023
  Transmission Date: 20120403
  Serious: Yes (Other)
  Sender: FDA-Public Use
  Company Number: ES-ELI_LILLY_AND_COMPANY-ES201110006357

PATIENT
  Age: 46 Year
  Sex: Female

DRUGS (1)
  1. ALIMTA [Suspect]
     Indication: LUNG NEOPLASM MALIGNANT
     Dosage: UNK, UNKNOWN
     Dates: start: 20111014

REACTIONS (5)
  - NAUSEA [None]
  - COUGH [None]
  - VOMITING [None]
  - OLIGURIA [None]
  - DYSPNOEA [None]
